FAERS Safety Report 9661575 (Version 2)
Quarter: 2013Q4

REPORT INFORMATION
  Report Type: Spontaneous
  Country: US (occurrence: US)
  Receive Date: 20131031
  Receipt Date: 20131031
  Transmission Date: 20140711
  Serious: No
  Sender: FDA-Public Use
  Company Number: US-PURDUE-USA-2010-0053343

PATIENT
  Sex: Female

DRUGS (4)
  1. OXYCONTIN (NDA 22-272) [Suspect]
     Indication: INTERVERTEBRAL DISC PROTRUSION
     Dosage: 20 MG, TID
     Route: 048
  2. OXYCONTIN (NDA 22-272) [Suspect]
     Indication: SCIATICA
  3. OXYCONTIN (NDA 22-272) [Suspect]
     Indication: ARTHRITIS
  4. HYDROCODONE [Concomitant]
     Indication: BREAKTHROUGH PAIN
     Dosage: UNK
     Route: 048

REACTIONS (8)
  - Gastrointestinal disorder [Unknown]
  - Headache [Unknown]
  - Nausea [Unknown]
  - Therapeutic response delayed [Unknown]
  - Unevaluable event [Unknown]
  - Somnolence [Unknown]
  - Drug effect decreased [Unknown]
  - Drug ineffective [Unknown]
